FAERS Safety Report 7032378-7 (Version None)
Quarter: 2010Q4

REPORT INFORMATION
  Report Type: 
  Country: None (occurrence: None)
  Receive Date: 20101005
  Receipt Date: 20100920
  Transmission Date: 20110411
  Serious: Yes (Death)
  Sender: FDA-Public Use
  Company Number: KP-ACCORD-005509

PATIENT
  Age: 26 Year
  Sex: Female

DRUGS (6)
  1. ETOPOSIDE [Suspect]
     Indication: DESMOPLASTIC SMALL ROUND CELL TUMOUR
  2. VINCRISTINE(VINCRISTINE) [Suspect]
     Indication: DESMOPLASTIC SMALL ROUND CELL TUMOUR
  3. DOXORUBICIN(DOXORUBICIN) [Suspect]
     Indication: DESMOPLASTIC SMALL ROUND CELL TUMOUR
  4. CISPLATIN [Suspect]
     Indication: DESMOPLASTIC SMALL ROUND CELL TUMOUR
  5. CYCLOPHOSPHAMIDE [Suspect]
     Indication: DESMOPLASTIC SMALL ROUND CELL TUMOUR
  6. IFOSFAMIDE [Suspect]
     Indication: DESMOPLASTIC SMALL ROUND CELL TUMOUR

REACTIONS (4)
  - DESMOPLASTIC SMALL ROUND CELL TUMOUR [None]
  - DISEASE PROGRESSION [None]
  - IRON DEFICIENCY ANAEMIA [None]
  - JAUNDICE CHOLESTATIC [None]
